FAERS Safety Report 25078884 (Version 1)
Quarter: 2025Q1

REPORT INFORMATION
  Report Type: Report from Study
  Country: KR (occurrence: KR)
  Receive Date: 20250314
  Receipt Date: 20250314
  Transmission Date: 20250409
  Serious: Yes (Hospitalization)
  Sender: MYLAN
  Company Number: KR-MYLANLABS-2025M1021289

PATIENT
  Sex: Male
  Weight: 78 kg

DRUGS (68)
  1. NEURONTIN [Suspect]
     Active Substance: GABAPENTIN
     Indication: Prophylaxis
     Dosage: 1 DOSAGE FORM, Q8H
     Dates: start: 20221202
  2. NEURONTIN [Suspect]
     Active Substance: GABAPENTIN
     Dosage: 1 DOSAGE FORM, Q8H
     Route: 065
     Dates: start: 20221202
  3. NEURONTIN [Suspect]
     Active Substance: GABAPENTIN
     Dosage: 1 DOSAGE FORM, Q8H
     Route: 065
     Dates: start: 20221202
  4. NEURONTIN [Suspect]
     Active Substance: GABAPENTIN
     Dosage: 1 DOSAGE FORM, Q8H
     Dates: start: 20221202
  5. PREGABALIN [Suspect]
     Active Substance: PREGABALIN
     Indication: Prophylaxis
     Dosage: 1 DOSAGE FORM, BID
     Dates: start: 20220809, end: 20221201
  6. PREGABALIN [Suspect]
     Active Substance: PREGABALIN
     Dosage: 1 DOSAGE FORM, BID
     Route: 065
     Dates: start: 20220809, end: 20221201
  7. PREGABALIN [Suspect]
     Active Substance: PREGABALIN
     Dosage: 1 DOSAGE FORM, BID
     Route: 065
     Dates: start: 20220809, end: 20221201
  8. PREGABALIN [Suspect]
     Active Substance: PREGABALIN
     Dosage: 1 DOSAGE FORM, BID
     Dates: start: 20220809, end: 20221201
  9. ALPRAZOLAM [Suspect]
     Active Substance: ALPRAZOLAM
     Indication: Prophylaxis
     Dosage: 1 DOSAGE FORM, QD
     Dates: start: 20230125
  10. ALPRAZOLAM [Suspect]
     Active Substance: ALPRAZOLAM
     Dosage: 1 DOSAGE FORM, QD
     Route: 065
     Dates: start: 20230125
  11. ALPRAZOLAM [Suspect]
     Active Substance: ALPRAZOLAM
     Dosage: 1 DOSAGE FORM, QD
     Route: 065
     Dates: start: 20230125
  12. ALPRAZOLAM [Suspect]
     Active Substance: ALPRAZOLAM
     Dosage: 1 DOSAGE FORM, QD
     Dates: start: 20230125
  13. BEVACIZUMAB [Suspect]
     Active Substance: BEVACIZUMAB
     Indication: Colorectal cancer metastatic
     Dosage: 370 MILLIGRAM, BIWEEKLY
     Dates: start: 20230117, end: 20230117
  14. BEVACIZUMAB [Suspect]
     Active Substance: BEVACIZUMAB
     Dosage: 370 MILLIGRAM, BIWEEKLY
     Route: 042
     Dates: start: 20230117, end: 20230117
  15. BEVACIZUMAB [Suspect]
     Active Substance: BEVACIZUMAB
     Dosage: 370 MILLIGRAM, BIWEEKLY
     Route: 042
     Dates: start: 20230117, end: 20230117
  16. BEVACIZUMAB [Suspect]
     Active Substance: BEVACIZUMAB
     Dosage: 370 MILLIGRAM, BIWEEKLY
     Dates: start: 20230117, end: 20230117
  17. OXYCODONE HYDROCHLORIDE [Suspect]
     Active Substance: OXYCODONE HYDROCHLORIDE
     Indication: Prophylaxis
     Dosage: 5 MILLIGRAM, QID
     Dates: start: 20221004, end: 20221128
  18. OXYCODONE HYDROCHLORIDE [Suspect]
     Active Substance: OXYCODONE HYDROCHLORIDE
     Dosage: 5 MILLIGRAM, QID
     Route: 065
     Dates: start: 20221004, end: 20221128
  19. OXYCODONE HYDROCHLORIDE [Suspect]
     Active Substance: OXYCODONE HYDROCHLORIDE
     Dosage: 5 MILLIGRAM, QID
     Route: 065
     Dates: start: 20221004, end: 20221128
  20. OXYCODONE HYDROCHLORIDE [Suspect]
     Active Substance: OXYCODONE HYDROCHLORIDE
     Dosage: 5 MILLIGRAM, QID
     Dates: start: 20221004, end: 20221128
  21. URSODIOL [Suspect]
     Active Substance: URSODIOL
     Indication: Blood alkaline phosphatase increased
     Dosage: 1 DOSAGE FORM, QID
     Dates: start: 20221202, end: 20230118
  22. URSODIOL [Suspect]
     Active Substance: URSODIOL
     Dosage: 1 DOSAGE FORM, QID
     Route: 065
     Dates: start: 20221202, end: 20230118
  23. URSODIOL [Suspect]
     Active Substance: URSODIOL
     Dosage: 1 DOSAGE FORM, QID
     Route: 065
     Dates: start: 20221202, end: 20230118
  24. URSODIOL [Suspect]
     Active Substance: URSODIOL
     Dosage: 1 DOSAGE FORM, QID
     Dates: start: 20221202, end: 20230118
  25. MEGESTROL ACETATE [Suspect]
     Active Substance: MEGESTROL ACETATE
     Indication: Prophylaxis
     Dosage: UNK, QD
     Dates: start: 20221216
  26. MEGESTROL ACETATE [Suspect]
     Active Substance: MEGESTROL ACETATE
     Dosage: UNK, QD
     Route: 065
     Dates: start: 20221216
  27. MEGESTROL ACETATE [Suspect]
     Active Substance: MEGESTROL ACETATE
     Dosage: UNK, QD
     Route: 065
     Dates: start: 20221216
  28. MEGESTROL ACETATE [Suspect]
     Active Substance: MEGESTROL ACETATE
     Dosage: UNK, QD
     Dates: start: 20221216
  29. ACETAMINOPHEN [Suspect]
     Active Substance: ACETAMINOPHEN
     Indication: Prophylaxis
     Dosage: 1 DOSAGE FORM, QID
     Dates: start: 20230117, end: 20230209
  30. ACETAMINOPHEN [Suspect]
     Active Substance: ACETAMINOPHEN
     Dosage: 1 DOSAGE FORM, QID
     Route: 065
     Dates: start: 20230117, end: 20230209
  31. ACETAMINOPHEN [Suspect]
     Active Substance: ACETAMINOPHEN
     Dosage: 1 DOSAGE FORM, QID
     Route: 065
     Dates: start: 20230117, end: 20230209
  32. ACETAMINOPHEN [Suspect]
     Active Substance: ACETAMINOPHEN
     Dosage: 1 DOSAGE FORM, QID
     Dates: start: 20230117, end: 20230209
  33. PIPERACILLIN AND TAZOBACTAM [Suspect]
     Active Substance: PIPERACILLIN SODIUM\TAZOBACTAM SODIUM
     Indication: Inflammation
     Dosage: UNK, Q6H
     Dates: start: 20230123, end: 20230127
  34. PIPERACILLIN AND TAZOBACTAM [Suspect]
     Active Substance: PIPERACILLIN SODIUM\TAZOBACTAM SODIUM
     Dosage: UNK, Q6H
     Route: 065
     Dates: start: 20230123, end: 20230127
  35. PIPERACILLIN AND TAZOBACTAM [Suspect]
     Active Substance: PIPERACILLIN SODIUM\TAZOBACTAM SODIUM
     Dosage: UNK, Q6H
     Route: 065
     Dates: start: 20230123, end: 20230127
  36. PIPERACILLIN AND TAZOBACTAM [Suspect]
     Active Substance: PIPERACILLIN SODIUM\TAZOBACTAM SODIUM
     Dosage: UNK, Q6H
     Dates: start: 20230123, end: 20230127
  37. ESOMEPRAZOLE SODIUM [Suspect]
     Active Substance: ESOMEPRAZOLE SODIUM
     Indication: Prophylaxis against gastrointestinal ulcer
     Dosage: UNK, QD
     Dates: start: 20230123, end: 20230123
  38. ESOMEPRAZOLE SODIUM [Suspect]
     Active Substance: ESOMEPRAZOLE SODIUM
     Dosage: UNK, QD
     Route: 065
     Dates: start: 20230123, end: 20230123
  39. ESOMEPRAZOLE SODIUM [Suspect]
     Active Substance: ESOMEPRAZOLE SODIUM
     Dosage: UNK, QD
     Route: 065
     Dates: start: 20230123, end: 20230123
  40. ESOMEPRAZOLE SODIUM [Suspect]
     Active Substance: ESOMEPRAZOLE SODIUM
     Dosage: UNK, QD
     Dates: start: 20230123, end: 20230123
  41. ALBUMIN HUMAN [Suspect]
     Active Substance: ALBUMIN HUMAN
     Indication: Prophylaxis
     Dosage: UNK, QD
     Dates: start: 20230126, end: 20230209
  42. ALBUMIN HUMAN [Suspect]
     Active Substance: ALBUMIN HUMAN
     Dosage: UNK, QD
     Route: 065
     Dates: start: 20230126, end: 20230209
  43. ALBUMIN HUMAN [Suspect]
     Active Substance: ALBUMIN HUMAN
     Dosage: UNK, QD
     Route: 065
     Dates: start: 20230126, end: 20230209
  44. ALBUMIN HUMAN [Suspect]
     Active Substance: ALBUMIN HUMAN
     Dosage: UNK, QD
     Dates: start: 20230126, end: 20230209
  45. LEVOFLOXACIN [Suspect]
     Active Substance: LEVOFLOXACIN
     Indication: Inflammation
     Dosage: UNK, QD
     Dates: start: 20230123, end: 20230127
  46. LEVOFLOXACIN [Suspect]
     Active Substance: LEVOFLOXACIN
     Dosage: UNK, QD
     Route: 065
     Dates: start: 20230123, end: 20230127
  47. LEVOFLOXACIN [Suspect]
     Active Substance: LEVOFLOXACIN
     Dosage: UNK, QD
     Route: 065
     Dates: start: 20230123, end: 20230127
  48. LEVOFLOXACIN [Suspect]
     Active Substance: LEVOFLOXACIN
     Dosage: UNK, QD
     Dates: start: 20230123, end: 20230127
  49. CALCIUM GLUCONATE [Suspect]
     Active Substance: CALCIUM GLUCONATE
     Indication: Prophylaxis
     Dosage: UNK, QD
     Dates: start: 20230125, end: 20230209
  50. CALCIUM GLUCONATE [Suspect]
     Active Substance: CALCIUM GLUCONATE
     Dosage: UNK, QD
     Route: 065
     Dates: start: 20230125, end: 20230209
  51. CALCIUM GLUCONATE [Suspect]
     Active Substance: CALCIUM GLUCONATE
     Dosage: UNK, QD
     Route: 065
     Dates: start: 20230125, end: 20230209
  52. CALCIUM GLUCONATE [Suspect]
     Active Substance: CALCIUM GLUCONATE
     Dosage: UNK, QD
     Dates: start: 20230125, end: 20230209
  53. FUROSEMIDE [Suspect]
     Active Substance: FUROSEMIDE
     Indication: Prophylaxis
     Dosage: UNK, QD
     Dates: start: 20230126, end: 20230126
  54. FUROSEMIDE [Suspect]
     Active Substance: FUROSEMIDE
     Dosage: UNK, QD
     Route: 065
     Dates: start: 20230126, end: 20230126
  55. FUROSEMIDE [Suspect]
     Active Substance: FUROSEMIDE
     Dosage: UNK, QD
     Route: 065
     Dates: start: 20230126, end: 20230126
  56. FUROSEMIDE [Suspect]
     Active Substance: FUROSEMIDE
     Dosage: UNK, QD
     Dates: start: 20230126, end: 20230126
  57. PROPACETAMOL HYDROCHLORIDE [Suspect]
     Active Substance: PROPACETAMOL HYDROCHLORIDE
     Indication: Pyrexia
     Dosage: UNK, QD
     Dates: start: 20230128, end: 20230208
  58. PROPACETAMOL HYDROCHLORIDE [Suspect]
     Active Substance: PROPACETAMOL HYDROCHLORIDE
     Dosage: UNK, QD
     Route: 065
     Dates: start: 20230128, end: 20230208
  59. PROPACETAMOL HYDROCHLORIDE [Suspect]
     Active Substance: PROPACETAMOL HYDROCHLORIDE
     Dosage: UNK, QD
     Route: 065
     Dates: start: 20230128, end: 20230208
  60. PROPACETAMOL HYDROCHLORIDE [Suspect]
     Active Substance: PROPACETAMOL HYDROCHLORIDE
     Dosage: UNK, QD
     Dates: start: 20230128, end: 20230208
  61. MEROPENEM [Suspect]
     Active Substance: MEROPENEM
     Indication: Inflammation
     Dosage: UNK, QID
     Dates: start: 20230128, end: 20230209
  62. MEROPENEM [Suspect]
     Active Substance: MEROPENEM
     Dosage: UNK, QID
     Route: 065
     Dates: start: 20230128, end: 20230209
  63. MEROPENEM [Suspect]
     Active Substance: MEROPENEM
     Dosage: UNK, QID
     Route: 065
     Dates: start: 20230128, end: 20230209
  64. MEROPENEM [Suspect]
     Active Substance: MEROPENEM
     Dosage: UNK, QID
     Dates: start: 20230128, end: 20230209
  65. CODEINE PHOSPHATE [Suspect]
     Active Substance: CODEINE PHOSPHATE
     Indication: Prophylaxis
     Dosage: 1 DOSAGE FORM, QD
     Dates: start: 20230202
  66. CODEINE PHOSPHATE [Suspect]
     Active Substance: CODEINE PHOSPHATE
     Dosage: 1 DOSAGE FORM, QD
     Route: 065
     Dates: start: 20230202
  67. CODEINE PHOSPHATE [Suspect]
     Active Substance: CODEINE PHOSPHATE
     Dosage: 1 DOSAGE FORM, QD
     Route: 065
     Dates: start: 20230202
  68. CODEINE PHOSPHATE [Suspect]
     Active Substance: CODEINE PHOSPHATE
     Dosage: 1 DOSAGE FORM, QD
     Dates: start: 20230202

REACTIONS (1)
  - Psoas abscess [Recovered/Resolved]

NARRATIVE: CASE EVENT DATE: 20230122
